FAERS Safety Report 5521242-8 (Version None)
Quarter: 2007Q4

REPORT INFORMATION
  Report Type: 
  Country: None (occurrence: None)
  Receive Date: 20071119
  Receipt Date: 20071107
  Transmission Date: 20080405
  Serious: Yes (Hospitalization)
  Sender: FDA-Public Use
  Company Number: US-SANOFI-SYNTHELABO-A03200706187

PATIENT
  Age: 759 Month
  Sex: Female
  Weight: 95.9 kg

DRUGS (13)
  1. TAXOTERE [Suspect]
     Indication: CHEMOTHERAPY
     Route: 042
  2. ZOFRAN [Concomitant]
     Indication: DRUG USE FOR UNKNOWN INDICATION
     Dosage: UNK
     Route: 065
  3. TEMODAR [Suspect]
     Indication: NON-SMALL CELL LUNG CANCER
     Route: 048
     Dates: start: 20070827, end: 20070917
  4. XANAX [Concomitant]
     Indication: DRUG USE FOR UNKNOWN INDICATION
     Dosage: UNK
     Route: 065
  5. TUSSIONEX [Concomitant]
     Indication: DRUG USE FOR UNKNOWN INDICATION
     Dosage: UNK
     Route: 065
  6. DECADRON [Concomitant]
     Indication: DRUG USE FOR UNKNOWN INDICATION
     Dosage: UNK
     Route: 065
  7. AMBIEN [Suspect]
     Indication: DRUG USE FOR UNKNOWN INDICATION
     Route: 048
  8. HYCODAN [Suspect]
     Indication: DRUG USE FOR UNKNOWN INDICATION
     Dosage: UNK
     Route: 065
  9. DIFLUCAN [Suspect]
     Indication: DRUG USE FOR UNKNOWN INDICATION
     Route: 065
     Dates: start: 20070914, end: 20070928
  10. CLINDAMYCIN HCL [Suspect]
     Indication: DRUG USE FOR UNKNOWN INDICATION
     Route: 065
     Dates: start: 20070911, end: 20070921
  11. ZITHROMAX [Suspect]
     Indication: DRUG USE FOR UNKNOWN INDICATION
     Dosage: UNK
     Route: 065
     Dates: start: 20070904, end: 20070908
  12. BACTRIM DS [Suspect]
     Indication: DRUG USE FOR UNKNOWN INDICATION
     Dosage: UNK
     Route: 048
     Dates: start: 20070827, end: 20070915
  13. LEVAQUIN [Suspect]
     Indication: DRUG USE FOR UNKNOWN INDICATION
     Route: 048
     Dates: start: 20070813, end: 20070823

REACTIONS (2)
  - CLOSTRIDIUM DIFFICILE COLITIS [None]
  - DEHYDRATION [None]
